FAERS Safety Report 8621750-7 (Version None)
Quarter: 2012Q3

REPORT INFORMATION
  Report Type: 
  Country: None (occurrence: None)
  Receive Date: 20120821
  Receipt Date: 20120821
  Transmission Date: 20120928
  Serious: No
  Sender: FDA-Public Use
  Company Number: None

PATIENT
  Sex: Female
  Weight: 92.5338 kg

DRUGS (2)
  1. SIMVASTATIN [Suspect]
     Indication: HYPERLIPIDAEMIA
     Dates: start: 20100520, end: 20100615
  2. MEVACOR [Suspect]
     Indication: HYPERLIPIDAEMIA
     Dates: start: 20100620, end: 20100630

REACTIONS (2)
  - INFLUENZA LIKE ILLNESS [None]
  - MUSCLE SPASMS [None]
